FAERS Safety Report 5592937-5 (Version None)
Quarter: 2008Q1

REPORT INFORMATION
  Report Type: 
  Country: None (occurrence: None)
  Receive Date: 20080116
  Receipt Date: 20080115
  Transmission Date: 20080703
  Serious: Yes (Other)
  Sender: FDA-Public Use
  Company Number: US-BAYER-200715724NA

PATIENT
  Sex: Male

DRUGS (2)
  1. REFLUDAN [Suspect]
     Indication: HEPARIN-INDUCED THROMBOCYTOPENIA
  2. WARFARIN SODIUM [Concomitant]
     Indication: HEART VALVE REPLACEMENT

REACTIONS (1)
  - INTERNATIONAL NORMALISED RATIO INCREASED [None]
